FAERS Safety Report 9171341 (Version 3)
Quarter: 2014Q2

REPORT INFORMATION
  Report Type: Spontaneous
  Country: US (occurrence: US)
  Receive Date: 20130319
  Receipt Date: 20140507
  Transmission Date: 20141212
  Serious: Yes (Hospitalization)
  Sender: FDA-Public Use
  Company Number: US-BAYER-2013-031299

PATIENT
  Age: 42 Year
  Sex: Female
  Weight: 88.89 kg

DRUGS (5)
  1. MIRENA [Suspect]
     Indication: CONTRACEPTION
     Dosage: 20 MCG/24HR, CONT
     Route: 015
     Dates: start: 20081009, end: 20100215
  2. ALBUTEROL [Concomitant]
     Indication: ASTHMA
  3. FLOVENT [Concomitant]
  4. QUINAPRIL [Concomitant]
     Dosage: 10 MG, UNK
  5. QUINAPRIL [Concomitant]
     Dosage: 12.5 MG, UNK

REACTIONS (11)
  - Uterine perforation [None]
  - Device issue [None]
  - Emotional distress [None]
  - Sexual dysfunction [None]
  - Abdominal pain upper [None]
  - Injury [None]
  - Pain [None]
  - Psychological trauma [None]
  - Depression [None]
  - Anxiety [None]
  - Sleep disorder [None]
